FAERS Safety Report 20949043 (Version 3)
Quarter: 2022Q4

REPORT INFORMATION
  Report Type: Spontaneous
  Country: JP (occurrence: JP)
  Receive Date: 20220613
  Receipt Date: 20221031
  Transmission Date: 20230113
  Serious: Yes (Hospitalization, Other)
  Sender: FDA-Public Use
  Company Number: JP-JNJFOC-20220613820

PATIENT
  Age: 30 Year
  Sex: Male
  Weight: 50.9 kg

DRUGS (61)
  1. STELARA [Suspect]
     Active Substance: USTEKINUMAB
     Indication: Crohn^s disease
     Dosage: DOSE UNKNOWN
     Route: 041
     Dates: start: 20180130, end: 20180130
  2. STELARA [Suspect]
     Active Substance: USTEKINUMAB
     Route: 058
     Dates: start: 20180328, end: 20180328
  3. STELARA [Suspect]
     Active Substance: USTEKINUMAB
     Route: 058
     Dates: start: 20180523, end: 20180523
  4. STELARA [Suspect]
     Active Substance: USTEKINUMAB
     Route: 058
     Dates: start: 20180718, end: 20180718
  5. STELARA [Suspect]
     Active Substance: USTEKINUMAB
     Route: 058
     Dates: start: 20180912, end: 20180912
  6. STELARA [Suspect]
     Active Substance: USTEKINUMAB
     Route: 058
     Dates: start: 20181107, end: 20181107
  7. STELARA [Suspect]
     Active Substance: USTEKINUMAB
     Route: 058
     Dates: start: 20190109, end: 20190109
  8. STELARA [Suspect]
     Active Substance: USTEKINUMAB
     Route: 058
     Dates: start: 20190306, end: 20190306
  9. STELARA [Suspect]
     Active Substance: USTEKINUMAB
     Route: 058
     Dates: start: 20190508, end: 20190508
  10. STELARA [Suspect]
     Active Substance: USTEKINUMAB
     Route: 058
     Dates: start: 20190703, end: 20190703
  11. STELARA [Suspect]
     Active Substance: USTEKINUMAB
     Route: 058
     Dates: start: 20190828, end: 20190828
  12. STELARA [Suspect]
     Active Substance: USTEKINUMAB
     Route: 058
     Dates: start: 20191030, end: 20191030
  13. STELARA [Suspect]
     Active Substance: USTEKINUMAB
     Route: 058
     Dates: start: 20191225, end: 20191225
  14. STELARA [Suspect]
     Active Substance: USTEKINUMAB
     Route: 058
     Dates: start: 20200219, end: 20200219
  15. STELARA [Suspect]
     Active Substance: USTEKINUMAB
     Route: 058
     Dates: start: 20200415, end: 20200415
  16. STELARA [Suspect]
     Active Substance: USTEKINUMAB
     Route: 058
     Dates: start: 20200610, end: 20200610
  17. STELARA [Suspect]
     Active Substance: USTEKINUMAB
     Route: 058
     Dates: start: 20200805, end: 20200805
  18. STELARA [Suspect]
     Active Substance: USTEKINUMAB
     Route: 058
     Dates: start: 20200930, end: 20200930
  19. STELARA [Suspect]
     Active Substance: USTEKINUMAB
     Route: 058
     Dates: start: 20201125, end: 20201125
  20. STELARA [Suspect]
     Active Substance: USTEKINUMAB
     Route: 058
     Dates: start: 20210127, end: 20210127
  21. STELARA [Suspect]
     Active Substance: USTEKINUMAB
     Route: 058
     Dates: start: 20210324, end: 20210324
  22. STELARA [Suspect]
     Active Substance: USTEKINUMAB
     Route: 058
     Dates: start: 20210519, end: 20210519
  23. STELARA [Suspect]
     Active Substance: USTEKINUMAB
     Route: 058
     Dates: start: 20210714, end: 20210714
  24. STELARA [Suspect]
     Active Substance: USTEKINUMAB
     Route: 058
     Dates: start: 20210908, end: 20210908
  25. STELARA [Suspect]
     Active Substance: USTEKINUMAB
     Route: 058
     Dates: start: 20211110, end: 20211110
  26. STELARA [Suspect]
     Active Substance: USTEKINUMAB
     Route: 058
     Dates: start: 20220105, end: 20220105
  27. STELARA [Suspect]
     Active Substance: USTEKINUMAB
     Route: 058
     Dates: start: 20220302, end: 20220302
  28. STELARA [Suspect]
     Active Substance: USTEKINUMAB
     Route: 058
     Dates: start: 20220427, end: 20220427
  29. PENTASA [Concomitant]
     Active Substance: MESALAMINE
     Indication: Crohn^s disease
     Dosage: DOSE UNKNOWN
     Route: 048
     Dates: start: 20050826
  30. PENTASA [Concomitant]
     Active Substance: MESALAMINE
     Dosage: AFTER EACH MEAL
     Route: 048
     Dates: start: 20160420
  31. AZATHIOPRINE [Concomitant]
     Active Substance: AZATHIOPRINE
     Indication: Crohn^s disease
     Dosage: DOSE UNKNOWN
     Route: 048
     Dates: start: 20080528
  32. AZATHIOPRINE [Concomitant]
     Active Substance: AZATHIOPRINE
     Indication: Crohn^s disease
     Dosage: AFTER BREAKFAST
     Route: 048
     Dates: start: 20171220, end: 20180213
  33. BIO-THREE [Concomitant]
     Active Substance: HERBALS
     Indication: Crohn^s disease
     Dosage: AFTER EACH MEAL
     Route: 048
     Dates: start: 20160622
  34. LANSOPRAZOLE [Concomitant]
     Active Substance: LANSOPRAZOLE
     Indication: Crohn^s disease
     Dosage: AFTER BREAKFAST
     Route: 048
     Dates: start: 20140523, end: 20180522
  35. AMINO ACIDS\CARBOHYDRATES\MINERALS\SOYBEAN OIL\VITAMINS [Concomitant]
     Active Substance: AMINO ACIDS\CARBOHYDRATES\MINERALS\SOYBEAN OIL\VITAMINS
     Indication: Crohn^s disease
     Dosage: 80-160 G/TIME, 3-5 PACKETS/DAY
     Route: 048
     Dates: start: 20170614
  36. MIYA-BM [Concomitant]
     Active Substance: CLOSTRIDIUM BUTYRICUM SPORES STRAIN M-55
     Indication: Crohn^s disease
     Dosage: AFTER EACH MEAL
     Route: 048
     Dates: start: 20170412, end: 20180327
  37. MIYA-BM [Concomitant]
     Active Substance: CLOSTRIDIUM BUTYRICUM SPORES STRAIN M-55
     Indication: Crohn^s disease
     Dosage: AFTER EACH MEAL
     Route: 048
     Dates: start: 20180328
  38. ZINC ACETATE [Concomitant]
     Active Substance: ZINC ACETATE
     Indication: Blood zinc decreased
     Dosage: AFTER BREAKFAST AND DINNER
     Route: 048
     Dates: start: 20180214, end: 20180327
  39. REBAMIPIDE [Concomitant]
     Active Substance: REBAMIPIDE
     Indication: Crohn^s disease
     Dosage: AFTER EACH MEAL
     Route: 048
     Dates: start: 20180523
  40. BUTYLSCOPOLAMINE BROMIDE [Concomitant]
     Active Substance: BUTYLSCOPOLAMINE BROMIDE
     Indication: Abdominal pain
     Dosage: P.R.N
     Route: 048
     Dates: start: 20220403
  41. BUTYLSCOPOLAMINE BROMIDE [Concomitant]
     Active Substance: BUTYLSCOPOLAMINE BROMIDE
     Indication: Vomiting
     Route: 042
     Dates: start: 20180213, end: 20180213
  42. AMINO ACIDS\DEXTROSE\ELECTROLYTES NOS\MINERALS\VITAMINS [Concomitant]
     Active Substance: AMINO ACIDS\DEXTROSE\ELECTROLYTES NOS\MINERALS\VITAMINS
     Indication: Nutritional supplementation
     Route: 042
     Dates: start: 20180130, end: 20180214
  43. AMINO ACIDS\DEXTROSE\ELECTROLYTES NOS\MINERALS\VITAMINS [Concomitant]
     Active Substance: AMINO ACIDS\DEXTROSE\ELECTROLYTES NOS\MINERALS\VITAMINS
     Indication: Nutritional supplementation
     Route: 042
     Dates: start: 20180426, end: 20180507
  44. SOYBEAN OIL [Concomitant]
     Active Substance: SOYBEAN OIL
     Indication: Nutritional supplementation
     Route: 042
     Dates: start: 20180130, end: 20180217
  45. SOYBEAN OIL [Concomitant]
     Active Substance: SOYBEAN OIL
     Indication: Nutritional supplementation
     Route: 042
     Dates: start: 20180427, end: 20180507
  46. PRIMPERAN [Concomitant]
     Active Substance: METOCLOPRAMIDE HYDROCHLORIDE
     Indication: Vomiting
     Route: 042
     Dates: start: 20180213, end: 20180213
  47. CEFMETAZOLE SODIUM [Concomitant]
     Active Substance: CEFMETAZOLE SODIUM
     Indication: Infection prophylaxis
     Route: 042
     Dates: start: 20180215, end: 20180216
  48. CEFMETAZOLE SODIUM [Concomitant]
     Active Substance: CEFMETAZOLE SODIUM
     Indication: Infection prophylaxis
     Route: 042
     Dates: start: 20180313, end: 20180313
  49. CEFMETAZOLE SODIUM [Concomitant]
     Active Substance: CEFMETAZOLE SODIUM
     Indication: Infection prophylaxis
     Route: 042
     Dates: start: 20180402, end: 20180403
  50. SOLDEM 3A [Concomitant]
     Active Substance: CARBOHYDRATES\POTASSIUM CHLORIDE\SODIUM CHLORIDE\SODIUM LACTATE
     Indication: Nutritional supplementation
     Route: 042
     Dates: start: 20180312, end: 20180313
  51. SOLDEM 3A [Concomitant]
     Active Substance: CARBOHYDRATES\POTASSIUM CHLORIDE\SODIUM CHLORIDE\SODIUM LACTATE
     Indication: Nutritional supplementation
     Route: 042
     Dates: start: 20180402, end: 20180402
  52. SOLDEM 3A [Concomitant]
     Active Substance: CARBOHYDRATES\POTASSIUM CHLORIDE\SODIUM CHLORIDE\SODIUM LACTATE
     Indication: Nutritional supplementation
     Route: 042
     Dates: start: 20180402, end: 20180402
  53. SOLDEM 3A [Concomitant]
     Active Substance: CARBOHYDRATES\POTASSIUM CHLORIDE\SODIUM CHLORIDE\SODIUM LACTATE
     Indication: Nutritional supplementation
     Route: 042
     Dates: start: 20180424, end: 20180426
  54. SOLDEM 3A [Concomitant]
     Active Substance: CARBOHYDRATES\POTASSIUM CHLORIDE\SODIUM CHLORIDE\SODIUM LACTATE
     Indication: Nutritional supplementation
     Route: 042
     Dates: start: 20180509, end: 20180509
  55. PLEVITA S [Concomitant]
     Indication: Nutritional supplementation
     Route: 042
     Dates: start: 20180312, end: 20180313
  56. PLEVITA S [Concomitant]
     Indication: Nutritional supplementation
     Route: 042
     Dates: start: 20180402, end: 20180404
  57. MEROPENEM [Concomitant]
     Active Substance: MEROPENEM
     Indication: Peritonitis
     Route: 041
     Dates: start: 20180423, end: 20180423
  58. MEROPENEM [Concomitant]
     Active Substance: MEROPENEM
     Route: 041
     Dates: start: 20180424, end: 20180427
  59. FENTANYL CITRATE [Concomitant]
     Active Substance: FENTANYL CITRATE
     Indication: Pain
     Route: 042
     Dates: start: 20180424, end: 20180424
  60. ACETAMINOPHEN [Concomitant]
     Active Substance: ACETAMINOPHEN
     Indication: Pain
     Route: 042
     Dates: start: 20180424, end: 20180425
  61. ACETAMINOPHEN [Concomitant]
     Active Substance: ACETAMINOPHEN
     Indication: Pain
     Route: 042
     Dates: start: 20180428, end: 20180428

REACTIONS (7)
  - Procedural intestinal perforation [Unknown]
  - Peritonitis [Unknown]
  - Testis cancer [Not Recovered/Not Resolved]
  - Blood zinc decreased [Not Recovered/Not Resolved]
  - White blood cell count decreased [Unknown]
  - Vomiting [Unknown]
  - Malaise [Unknown]

NARRATIVE: CASE EVENT DATE: 20180208
